FAERS Safety Report 5103261-9 (Version None)
Quarter: 2006Q3

REPORT INFORMATION
  Report Type: 
  Country: None (occurrence: None)
  Receive Date: 20060913
  Receipt Date: 20060829
  Transmission Date: 20061208
  Serious: Yes (Other)
  Sender: FDA-Public Use
  Company Number: 2006GB01546

PATIENT
  Age: 46 Year
  Sex: Female

DRUGS (2)
  1. ZOLMITRIPTAN [Suspect]
     Indication: MIGRAINE
     Route: 048
     Dates: start: 20050610
  2. CETIRIZINE HCL [Concomitant]
     Indication: SEASONAL ALLERGY
     Route: 048

REACTIONS (3)
  - DYSARTHRIA [None]
  - FEELING DRUNK [None]
  - IMPAIRED DRIVING ABILITY [None]
